FAERS Safety Report 14283231 (Version 1)
Quarter: 2017Q4

REPORT INFORMATION
  Report Type: Spontaneous
  Country: US (occurrence: US)
  Receive Date: 20171213
  Receipt Date: 20171213
  Transmission Date: 20180321
  Serious: No
  Sender: FDA-Public Use
  Company Number: US-GLAXOSMITHKLINE-US2017186595

PATIENT
  Age: 74 Year
  Sex: Female

DRUGS (1)
  1. ALLI [Suspect]
     Active Substance: ORLISTAT
     Indication: WEIGHT CONTROL
     Dosage: UNK
     Dates: start: 20171203, end: 20171204

REACTIONS (4)
  - Back pain [Unknown]
  - Product use in unapproved indication [Unknown]
  - Chromaturia [Unknown]
  - Discomfort [Unknown]

NARRATIVE: CASE EVENT DATE: 20171204
